FAERS Safety Report 9325559 (Version 1)
Quarter: 2013Q2

REPORT INFORMATION
  Report Type: Report from Study
  Country: BR (occurrence: BR)
  Receive Date: 20130604
  Receipt Date: 20130604
  Transmission Date: 20140414
  Serious: Yes (Hospitalization, Other)
  Sender: FDA-Public Use
  Company Number: BR-BAYER-2013-065498

PATIENT
  Sex: Female

DRUGS (5)
  1. BETAFERON [Suspect]
     Indication: MULTIPLE SCLEROSIS
     Dosage: 1 ML, QOD
     Route: 058
     Dates: start: 2011
  2. OMEPRAZOL [Concomitant]
     Indication: GASTRITIS
     Dosage: 1 DF, OM
     Route: 048
  3. RIVOTRIL [Concomitant]
     Indication: DIZZINESS
     Dosage: 4 DROPS IN THE MORNING AND 6 DROPS AT NIGHT
     Route: 048
  4. SERTRALINE [Concomitant]
     Indication: SEDATION
     Dosage: 1 DF, QD
     Route: 048
  5. METFORMIN [Concomitant]
     Indication: DIABETES MELLITUS
     Dosage: 1 DF, QD
     Route: 048

REACTIONS (7)
  - Uterine haemorrhage [Recovered/Resolved]
  - Ovarian haemorrhage [Recovered/Resolved]
  - Haemorrhagic anaemia [Recovering/Resolving]
  - Chills [None]
  - Pyrexia [None]
  - Chills [None]
  - Pyrexia [None]
